FAERS Safety Report 4861919-0 (Version None)
Quarter: 2005Q4

REPORT INFORMATION
  Report Type: 
  Country: None (occurrence: None)
  Receive Date: 20051129
  Receipt Date: 20050812
  Transmission Date: 20060501
  Serious: Yes (Disabling)
  Sender: FDA-Public Use
  Company Number: WAES 0506USA01357

PATIENT
  Age: 80 Year
  Sex: Male

DRUGS (4)
  1. ZETIA [Suspect]
     Indication: BLOOD CHOLESTEROL INCREASED
     Dosage: 10 MG DAILY PO
     Route: 048
  2. . [Concomitant]
  3. SYNTHROID [Concomitant]
  4. (THERAPY UNSPECIFIED) [Concomitant]

REACTIONS (5)
  - ASTHENIA [None]
  - DIARRHOEA [None]
  - HYPOTHYROIDISM [None]
  - MALABSORPTION [None]
  - WEIGHT DECREASED [None]
